FAERS Safety Report 23256105 (Version 1)
Quarter: 2023Q4

REPORT INFORMATION
  Report Type: Spontaneous
  Country: ES (occurrence: ES)
  Receive Date: 20231204
  Receipt Date: 20231204
  Transmission Date: 20240109
  Serious: Yes (Other)
  Sender: FDA-Public Use
  Company Number: ES-NOVOPROD-1145335

PATIENT
  Age: 71 Year
  Sex: Female

DRUGS (2)
  1. OZEMPIC [Suspect]
     Active Substance: SEMAGLUTIDE
     Indication: Diabetes mellitus
     Dosage: 0.5 MG
  2. METFORMIN [Suspect]
     Active Substance: METFORMIN HYDROCHLORIDE
     Indication: Product used for unknown indication
     Dosage: UNK

REACTIONS (3)
  - Retinal vascular thrombosis [Unknown]
  - Vision blurred [Unknown]
  - Abdominal distension [Unknown]

NARRATIVE: CASE EVENT DATE: 20230101
